FAERS Safety Report 4945548-6 (Version None)
Quarter: 2006Q1

REPORT INFORMATION
  Report Type: 
  Country: None (occurrence: None)
  Receive Date: 20060316
  Receipt Date: 20051205
  Transmission Date: 20060701
  Serious: Yes (Death, Other)
  Sender: FDA-Public Use
  Company Number: US-MERCK-0512USA00834

PATIENT
  Age: 51 Year
  Sex: Male

DRUGS (5)
  1. VIOXX [Suspect]
     Route: 048
     Dates: start: 20010101, end: 20040501
  2. ENBREL [Concomitant]
     Route: 048
  3. AZULFIDINE [Concomitant]
     Route: 048
  4. FOLIC ACID [Concomitant]
     Route: 048
  5. PREDNISONE [Concomitant]
     Indication: RHEUMATOID ARTHRITIS
     Route: 048

REACTIONS (3)
  - BLOOD ALKALINE PHOSPHATASE INCREASED [None]
  - DEATH [None]
  - MYOCARDIAL INFARCTION [None]
